FAERS Safety Report 7282472-0 (Version None)
Quarter: 2011Q1

REPORT INFORMATION
  Report Type: 
  Country: None (occurrence: None)
  Receive Date: 20110209
  Receipt Date: 20110131
  Transmission Date: 20110831
  Serious: Yes (Life-Threatening)
  Sender: FDA-Public Use
  Company Number: FR-MILLENNIUM PHARMACEUTICALS, INC.-2010-05163

PATIENT

DRUGS (13)
  1. VELCADE [Suspect]
     Dosage: 1 MG/M2, UNK
     Route: 042
     Dates: start: 20100118, end: 20100124
  2. DEXAMETHASONE [Concomitant]
     Dosage: 20 UNK, UNK
     Dates: start: 20100301, end: 20100830
  3. CYCLOPHOSPHAMIDE [Concomitant]
     Indication: MULTIPLE MYELOMA
     Dosage: 300 MG, UNK
     Route: 042
     Dates: start: 20091214, end: 20100104
  4. CYCLOPHOSPHAMIDE [Concomitant]
     Dosage: 250 MG, UNK
     Dates: start: 20100118, end: 20100830
  5. CORTANCYL [Concomitant]
     Dosage: UNK
  6. ACE INHIBITORS AND DIURETICS [Concomitant]
     Dosage: UNK
     Dates: start: 20071112
  7. DEXAMETHASONE [Concomitant]
     Indication: MULTIPLE MYELOMA
     Dosage: 40 MG, UNK
     Route: 048
     Dates: start: 20071112, end: 20100208
  8. RED BLOOD CELLS [Concomitant]
     Dosage: UNK
     Route: 042
     Dates: start: 20071206
  9. VELCADE [Suspect]
     Indication: MULTIPLE MYELOMA
     Dosage: 1.3 MG/M2, CYCLIC
     Dates: start: 20071112, end: 20071210
  10. SMECTA                             /00837601/ [Concomitant]
     Dosage: UNK
     Dates: start: 20071204, end: 20071206
  11. ANTIEMETICS AND ANTINAUSEANTS [Concomitant]
     Dosage: UNK
     Dates: start: 20071204, end: 20071206
  12. VELCADE [Suspect]
     Dosage: 0.7 MG/M2, UNK
     Route: 042
     Dates: start: 20100412, end: 20100830
  13. PAMIDRONIC ACID [Concomitant]
     Dosage: UNK
     Route: 042
     Dates: start: 20071203, end: 20071203

REACTIONS (1)
  - THROMBOCYTOPENIA [None]
